FAERS Safety Report 5780268-X (Version None)
Quarter: 2008Q2

REPORT INFORMATION
  Report Type: 
  Country: None (occurrence: None)
  Receive Date: 20080620
  Receipt Date: 20080618
  Transmission Date: 20081010
  Serious: Yes (Death, Other)
  Sender: FDA-Public Use
  Company Number: PHBS2008SG04638

PATIENT
  Age: 57 Year
  Sex: Female

DRUGS (2)
  1. CYCLOSPORINE [Suspect]
     Indication: RENAL TRANSPLANT
     Dosage: 50 MG, BID
     Route: 065
  2. PREDNISOLONE [Suspect]
     Indication: RENAL TRANSPLANT
     Dosage: 8 MG, QD
     Route: 065

REACTIONS (10)
  - ASCITES [None]
  - BONE MARROW FAILURE [None]
  - COMPUTERISED TOMOGRAM ABNORMAL [None]
  - LYMPHOPROLIFERATIVE DISORDER [None]
  - PAIN [None]
  - RASH PAPULAR [None]
  - SKIN NECROSIS [None]
  - SKIN NODULE [None]
  - STAPHYLOCOCCAL SEPSIS [None]
  - TRANSAMINASES INCREASED [None]
